FAERS Safety Report 7429560-3 (Version None)
Quarter: 2011Q2

REPORT INFORMATION
  Report Type: 
  Country: None (occurrence: None)
  Receive Date: 20110421
  Receipt Date: 20110413
  Transmission Date: 20111010
  Serious: Yes (Life-Threatening, Hospitalization, Other)
  Sender: FDA-Public Use
  Company Number: A0915396A

PATIENT
  Age: 73 Year
  Sex: Male
  Weight: 74.5 kg

DRUGS (2)
  1. COMBIVENT [Concomitant]
  2. ADVAIR HFA [Suspect]
     Indication: ASTHMA
     Dosage: 1PUFF TWICE PER DAY
     Route: 055

REACTIONS (4)
  - DISCOMFORT [None]
  - FLATULENCE [None]
  - MYOCARDIAL INFARCTION [None]
  - LIMB DISCOMFORT [None]
